FAERS Safety Report 7071711-7 (Version None)
Quarter: 2010Q4

REPORT INFORMATION
  Report Type: 
  Country: None (occurrence: None)
  Receive Date: 20101029
  Receipt Date: 20091012
  Transmission Date: 20110411
  Serious: No
  Sender: FDA-Public Use
  Company Number: A0811395A

PATIENT
  Age: 84 Year
  Sex: Female

DRUGS (6)
  1. ADVAIR DISKUS 100/50 [Suspect]
     Indication: ASTHMA
     Dosage: 1PUFF TWICE PER DAY
     Route: 055
  2. PROAIR HFA [Concomitant]
  3. ALLEGRA [Concomitant]
  4. SINGULAIR [Concomitant]
  5. PROCRIT [Concomitant]
  6. PLAVIX [Concomitant]
     Indication: BLOOD DISORDER

REACTIONS (2)
  - DYSPNOEA [None]
  - MULTIPLE ALLERGIES [None]
